FAERS Safety Report 19737243 (Version 1)
Quarter: 2021Q3

REPORT INFORMATION
  Report Type: Report from Study
  Country: None (occurrence: AR)
  Receive Date: 20210824
  Receipt Date: 20210824
  Transmission Date: 20211014
  Serious: Yes (Death)
  Sender: FDA-Public Use
  Company Number: AR-ABBVIE-21K-007-4050909-00

PATIENT
  Age: 56 Year
  Sex: Male

DRUGS (1)
  1. HUMIRA [Suspect]
     Active Substance: ADALIMUMAB
     Indication: CROHN^S DISEASE
     Route: 058
     Dates: start: 20161111, end: 201802

REACTIONS (5)
  - Lung disorder [Unknown]
  - Renal disorder [Unknown]
  - Cardiac disorder [Unknown]
  - Condition aggravated [Fatal]
  - Liver disorder [Unknown]

NARRATIVE: CASE EVENT DATE: 202107
